FAERS Safety Report 6342839-1 (Version None)
Quarter: 2009Q3

REPORT INFORMATION
  Report Type: 
  Country: None (occurrence: None)
  Receive Date: 20090908
  Receipt Date: 20090825
  Transmission Date: 20100115
  Serious: Yes (Hospitalization)
  Sender: FDA-Public Use
  Company Number: CA-ELI_LILLY_AND_COMPANY-CA200907005883

PATIENT
  Sex: Male

DRUGS (3)
  1. SOMATROPIN [Suspect]
     Indication: HYPOPITUITARISM
     Dosage: 0.25 MG, DAILY (1/D)
     Route: 058
     Dates: start: 20080115
  2. SYNTHROID [Concomitant]
  3. HYDROCORTISONE [Concomitant]

REACTIONS (1)
  - CRYPTORCHISM [None]
